FAERS Safety Report 7496870-3 (Version None)
Quarter: 2011Q2

REPORT INFORMATION
  Report Type: 
  Country: None (occurrence: None)
  Receive Date: 20110523
  Receipt Date: 20110511
  Transmission Date: 20111010
  Serious: Yes (Other)
  Sender: FDA-Public Use
  Company Number: US-ELI_LILLY_AND_COMPANY-US201105003883

PATIENT
  Age: 59 Year
  Sex: Male

DRUGS (2)
  1. HUMALOG [Suspect]
     Dosage: 30 U, QD
  2. HUMALOG [Suspect]
     Dosage: UNK UNK, PRN

REACTIONS (1)
  - BLINDNESS [None]
